FAERS Safety Report 5715675-4 (Version None)
Quarter: 2008Q2

REPORT INFORMATION
  Report Type: 
  Country: None (occurrence: None)
  Receive Date: 20080424
  Receipt Date: 20080414
  Transmission Date: 20081010
  Serious: Yes (Other)
  Sender: FDA-Public Use
  Company Number: US-JNJFOC-20080404455

PATIENT
  Sex: Female

DRUGS (7)
  1. DURAGESIC-100 [Suspect]
     Route: 062
  2. DURAGESIC-100 [Suspect]
     Indication: PAIN
     Route: 062
  3. FENTANYL TRANSDERMAL SYSTEM [Suspect]
     Indication: PAIN
     Route: 062
  4. PREMARIN [Concomitant]
     Indication: HYSTERECTOMY
     Route: 048
  5. GEMFIBROZIL [Concomitant]
     Indication: GASTRIC DISORDER
     Route: 048
  6. FLUTICASONE [Concomitant]
     Indication: MULTIPLE ALLERGIES
     Dosage: 1 SPRAY PER NOSTRIL AT NIGHT
     Route: 045
  7. ALLEGRA [Concomitant]
     Indication: MULTIPLE ALLERGIES
     Dosage: ONE TABLET AT NIGHT
     Route: 048

REACTIONS (4)
  - DYSPNOEA [None]
  - HEART RATE INCREASED [None]
  - THYROID DISORDER [None]
  - TYPE 2 DIABETES MELLITUS [None]
